FAERS Safety Report 9219686 (Version 1)
Quarter: 2013Q2

REPORT INFORMATION
  Report Type: Spontaneous
  Country: US (occurrence: None)
  Receive Date: 20130405
  Receipt Date: 20130405
  Transmission Date: 20140414
  Serious: Yes (Hospitalization)
  Sender: FDA-Public Use
  Company Number: SYM-2013-02398

PATIENT
  Age: 9 Month
  Sex: Female

DRUGS (1)
  1. DILTIAZEM HYDROCHLORIDE [Suspect]
     Indication: PRODUCT USED FOR UNKNOWN INDICATION
     Route: 048

REACTIONS (11)
  - Vomiting [None]
  - Heart rate decreased [None]
  - Respiratory rate increased [None]
  - Blood pressure decreased [None]
  - Bradycardia [None]
  - Hypotension [None]
  - Atrioventricular block [None]
  - Blood bicarbonate decreased [None]
  - Anion gap increased [None]
  - Blood glucose increased [None]
  - Nodal rhythm [None]
